FAERS Safety Report 7208500-6 (Version None)
Quarter: 2011Q1

REPORT INFORMATION
  Report Type: 
  Country: None (occurrence: None)
  Receive Date: 20110104
  Receipt Date: 20101222
  Transmission Date: 20110831
  Serious: Yes (Other)
  Sender: FDA-Public Use
  Company Number: US-JNJFOC-20101208409

PATIENT
  Sex: Female
  Weight: 92.08 kg

DRUGS (8)
  1. METHADONE [Concomitant]
     Indication: PAIN
     Route: 048
  2. METFORMIN [Concomitant]
     Indication: BLOOD GLUCOSE INCREASED
     Route: 048
  3. ACETAMINOPHEN [Suspect]
     Route: 048
  4. METOPROLOL [Concomitant]
     Indication: HEART RATE IRREGULAR
     Route: 048
  5. ACETAMINOPHEN [Suspect]
     Indication: PAIN
     Route: 048
  6. LISINOPRIL [Concomitant]
     Indication: BLOOD PRESSURE
     Route: 048
  7. PANCREAZE [Suspect]
     Indication: PANCREATITIS
     Dosage: 63000 UNITS/ CAPSULE, 10500 UNITS/ 6 CAPSULE
     Route: 048
  8. METOPROLOL [Concomitant]
     Indication: BLOOD PRESSURE
     Route: 048

REACTIONS (1)
  - POST GASTRIC SURGERY SYNDROME [None]
